FAERS Safety Report 18577161 (Version 1)
Quarter: 2020Q4

REPORT INFORMATION
  Report Type: Spontaneous
  Country: CN (occurrence: CN)
  Receive Date: 20201203
  Receipt Date: 20201203
  Transmission Date: 20210114
  Serious: Yes (Death)
  Sender: FDA-Public Use
  Company Number: CN-TOLMAR, INC.-20CN024220

PATIENT
  Age: 29 Year
  Sex: Female

DRUGS (2)
  1. ELIGARD [Suspect]
     Active Substance: LEUPROLIDE ACETATE
     Indication: HORMONE SUPPRESSION THERAPY
     Dosage: 3.75 MG
     Route: 058
  2. FOLLITROPIN ALFA [Suspect]
     Active Substance: FOLLITROPIN
     Indication: OVULATION INDUCTION
     Dosage: 150 INTERNATIONAL UNIT
     Route: 030

REACTIONS (2)
  - Ovarian hyperstimulation syndrome [Fatal]
  - Off label use [Unknown]
